FAERS Safety Report 8587296-X (Version None)
Quarter: 2012Q3

REPORT INFORMATION
  Report Type: 
  Country: None (occurrence: None)
  Receive Date: 20120810
  Receipt Date: 20120214
  Transmission Date: 20120928
  Serious: Yes (Other)
  Sender: FDA-Public Use
  Company Number: US-ASTRAZENECA-2012SE10626

PATIENT
  Age: 62 Year
  Sex: Female

DRUGS (2)
  1. FASLODEX [Suspect]
     Route: 030
  2. ARIMIDEX [Suspect]
     Route: 048

REACTIONS (3)
  - RECURRENT CANCER [None]
  - DRUG INEFFECTIVE [None]
  - NODULE [None]
